FAERS Safety Report 6896694-1 (Version None)
Quarter: 2010Q3

REPORT INFORMATION
  Report Type: 
  Country: None (occurrence: None)
  Receive Date: 20100802
  Receipt Date: 20070126
  Transmission Date: 20110219
  Serious: No
  Sender: FDA-Public Use
  Company Number: US-PFIZER INC-2007007439

PATIENT
  Sex: Female
  Weight: 72.57 kg

DRUGS (6)
  1. LYRICA [Suspect]
     Indication: NEUROPATHY PERIPHERAL
     Dates: start: 20061001, end: 20061101
  2. METOPROLOL [Concomitant]
  3. HYDROCHLOROTHIAZIDE [Concomitant]
  4. PAXIL CR [Concomitant]
  5. PRILOSEC [Concomitant]
  6. ZOCOR [Concomitant]

REACTIONS (2)
  - EUPHORIC MOOD [None]
  - HUNGER [None]
